FAERS Safety Report 17371498 (Version 1)
Quarter: 2020Q1

REPORT INFORMATION
  Report Type: Spontaneous
  Country: FR (occurrence: FR)
  Receive Date: 20200205
  Receipt Date: 20200205
  Transmission Date: 20200409
  Serious: Yes (Hospitalization)
  Sender: FDA-Public Use
  Company Number: FR-AXELLIA-002957

PATIENT
  Age: 67 Year
  Sex: Male

DRUGS (14)
  1. DACRYOSERUM [Concomitant]
     Active Substance: BORIC ACID\SODIUM BORATE
     Dosage: SOLUTION FOR EYE WASH
     Route: 047
  2. LANSOPRAZOLE. [Concomitant]
     Active Substance: LANSOPRAZOLE
     Route: 048
  3. PARACETAMOL [Concomitant]
     Active Substance: ACETAMINOPHEN
     Route: 048
  4. GABAPENTIN. [Concomitant]
     Active Substance: GABAPENTIN
     Route: 048
  5. TAMSULOSIN/TAMSULOSIN HYDROCHLORIDE [Concomitant]
     Active Substance: TAMSULOSIN HYDROCHLORIDE
     Route: 048
  6. LEVOTHYROX [Concomitant]
     Active Substance: LEVOTHYROXINE
     Dosage: SCORED TABLET
     Route: 048
  7. ATORVASTATIN/ATORVASTATIN CALCIUM [Concomitant]
     Active Substance: ATORVASTATIN CALCIUM
     Route: 048
  8. CALCIPARINE [Concomitant]
     Active Substance: HEPARIN CALCIUM
     Route: 058
  9. NOVORAPID [Concomitant]
     Active Substance: INSULIN ASPART
     Indication: TYPE 2 DIABETES MELLITUS
     Route: 058
  10. CALCIUM FOLINATE/FOLINIC ACID/SODIUM FOLINATE [Concomitant]
     Active Substance: LEUCOVORIN
     Route: 048
  11. EZETIMIBE. [Concomitant]
     Active Substance: EZETIMIBE
     Route: 048
  12. VANCOMYCIN [Suspect]
     Active Substance: VANCOMYCIN
     Indication: DEVICE RELATED INFECTION
     Route: 042
     Dates: start: 20191212, end: 20191225
  13. THERALENE [Concomitant]
     Active Substance: TRIMEPRAZINE
     Dosage: 4 PERCENT, ORAL SOLUTION IN DROPS
     Route: 048
  14. LANSOYL [Concomitant]
     Active Substance: MINERAL OIL
     Route: 048

REACTIONS (2)
  - Face oedema [Recovered/Resolved]
  - Rash maculo-papular [Recovered/Resolved]

NARRATIVE: CASE EVENT DATE: 20191228
